FAERS Safety Report 9845954 (Version 1)
Quarter: 2014Q1

REPORT INFORMATION
  Report Type: Spontaneous
  Country: CA (occurrence: CA)
  Receive Date: 20140127
  Receipt Date: 20140127
  Transmission Date: 20141002
  Serious: Yes (Other)
  Sender: FDA-Public Use
  Company Number: CA-009507513-1401CAN010586

PATIENT
  Sex: Male

DRUGS (4)
  1. MIRTAZAPINE [Suspect]
     Dosage: 45 MG, UNK
     Route: 065
  2. MIRTAZAPINE [Suspect]
     Dosage: 15 MG, UNK
     Route: 065
  3. MIRTAZAPINE [Suspect]
     Dosage: 30 MG, UNK
     Route: 065
  4. MIRTAZAPINE [Suspect]
     Dosage: 35 MG, UNK
     Route: 065

REACTIONS (6)
  - Drug withdrawal syndrome [Not Recovered/Not Resolved]
  - Sleep disorder [Not Recovered/Not Resolved]
  - Sleep disorder [Not Recovered/Not Resolved]
  - Hyperhidrosis [Not Recovered/Not Resolved]
  - Hyperhidrosis [Not Recovered/Not Resolved]
  - Abnormal dreams [Not Recovered/Not Resolved]
